FAERS Safety Report 8606043-6 (Version None)
Quarter: 2012Q3

REPORT INFORMATION
  Report Type: 
  Country: None (occurrence: None)
  Receive Date: 20120809
  Receipt Date: 20120809
  Transmission Date: 20120928
  Serious: Yes (Life-Threatening, Hospitalization)
  Sender: FDA-Public Use
  Company Number: None

PATIENT
  Age: 60 Year
  Sex: Male
  Weight: 89.7 kg

DRUGS (1)
  1. METHADONE HYDROCHLORIDE [Suspect]
     Dates: start: 20120723, end: 20120723

REACTIONS (3)
  - RESPIRATORY DEPRESSION [None]
  - SELF-MEDICATION [None]
  - MENTAL STATUS CHANGES [None]
